FAERS Safety Report 8015886-1 (Version None)
Quarter: 2011Q4

REPORT INFORMATION
  Report Type: 
  Country: None (occurrence: None)
  Receive Date: 20111230
  Receipt Date: 20111219
  Transmission Date: 20120403
  Serious: Yes (Death)
  Sender: FDA-Public Use
  Company Number: US-PFIZER INC-2011311245

PATIENT
  Age: 20 Year
  Sex: Female

DRUGS (6)
  1. MORPHINE SULFATE [Suspect]
     Route: 048
  2. NORDAZEPAM [Suspect]
  3. DIAZEPAM [Suspect]
     Route: 048
  4. MARIJUANA [Suspect]
  5. VENLAFAXINE HCL [Suspect]
     Route: 048
  6. TEMAZEPAM [Suspect]

REACTIONS (3)
  - RESPIRATORY ARREST [None]
  - TOXICITY TO VARIOUS AGENTS [None]
  - CARDIAC ARREST [None]
